FAERS Safety Report 10140697 (Version 2)
Quarter: 2014Q2

REPORT INFORMATION
  Report Type: Report from Study
  Country: US (occurrence: US)
  Receive Date: 20140429
  Receipt Date: 20140507
  Transmission Date: 20141212
  Serious: Yes (Hospitalization, Other)
  Sender: FDA-Public Use
  Company Number: PHEH2014US008260

PATIENT
  Age: 13 Year
  Sex: Female

DRUGS (1)
  1. TOBI PODHALER [Suspect]
     Indication: CYSTIC FIBROSIS
     Dosage: 112 MG, BID
     Route: 055

REACTIONS (7)
  - Aspiration [Unknown]
  - Oxygen saturation decreased [Unknown]
  - Forced expiratory volume decreased [Unknown]
  - Burkholderia cepacia complex infection [Unknown]
  - Cystic fibrosis [Unknown]
  - Condition aggravated [Unknown]
  - Underweight [Unknown]
